FAERS Safety Report 10411057 (Version 1)
Quarter: 2014Q1

REPORT INFORMATION
  Report Type: Spontaneous
  Country: US (occurrence: None)
  Receive Date: 20140318
  Receipt Date: 20140318
  Transmission Date: 20141002
  Serious: Yes (Other)
  Sender: FDA-Public Use
  Company Number: US-JNJFOC-20130313670

PATIENT
  Age: 67 Year
  Sex: Female
  Weight: 127.92 kg

DRUGS (2)
  1. ROGAINE FOR MEN EXTRA STRENGTH FOAM UNSCENTED [Suspect]
     Indication: ALOPECIA
     Route: 061
     Dates: start: 201302, end: 20130317
  2. MULTVITAMINS (MULTIVITAMINS) [Concomitant]

REACTIONS (4)
  - Weight increased [None]
  - Local swelling [None]
  - Wrong drug administered [None]
  - Joint swelling [None]
